FAERS Safety Report 22039593 (Version 2)
Quarter: 2023Q1

REPORT INFORMATION
  Report Type: Spontaneous
  Country: CA (occurrence: CA)
  Receive Date: 20230227
  Receipt Date: 20230306
  Transmission Date: 20230418
  Serious: Yes (Hospitalization, Other)
  Sender: FDA-Public Use
  Company Number: CA-CHEPLA-2023002480

PATIENT
  Age: 56 Year
  Sex: Male

DRUGS (23)
  1. CLONAZEPAM [Suspect]
     Active Substance: CLONAZEPAM
     Indication: Anxiety
     Dosage: DAILY DOSE: 0.5 MILLIGRAM
  2. CLONAZEPAM [Suspect]
     Active Substance: CLONAZEPAM
     Indication: Anxiety
     Dosage: BID?DAILY DOSE: 0.5 MILLIGRAM
  3. CLONAZEPAM [Suspect]
     Active Substance: CLONAZEPAM
     Indication: Anxiety
     Dosage: 1 EVERY 2 DAYS
  4. ASENAPINE MALEATE [Suspect]
     Active Substance: ASENAPINE MALEATE
     Indication: Antipsychotic therapy
     Dosage: DAILY DOSE: 5 MILLIGRAM
     Route: 060
     Dates: start: 2009
  5. LAMOTRIGINE [Suspect]
     Active Substance: LAMOTRIGINE
     Indication: Affective disorder
     Dosage: DAILY DOSE: 300 MILLIGRAM
  6. LITHIUM [Suspect]
     Active Substance: LITHIUM
     Indication: Affective disorder
     Dosage: 2 EVERY 1 DAYS
  7. VENLAFAXINE HYDROCHLORIDE [Suspect]
     Active Substance: VENLAFAXINE HYDROCHLORIDE
     Indication: Depression
  8. VENLAFAXINE HYDROCHLORIDE [Suspect]
     Active Substance: VENLAFAXINE HYDROCHLORIDE
     Indication: Anxiety
  9. VENLAFAXINE HYDROCHLORIDE [Suspect]
     Active Substance: VENLAFAXINE HYDROCHLORIDE
     Indication: Depression
     Dosage: CAPSULE, EXTENDED RELEASE?DAILY DOSE: 112.5 MILLIGRAM
  10. VENLAFAXINE HYDROCHLORIDE [Suspect]
     Active Substance: VENLAFAXINE HYDROCHLORIDE
     Indication: Anxiety
     Dosage: CAPSULE, EXTENDED RELEASE?DAILY DOSE: 112.5 MILLIGRAM
  11. OLANZAPINE [Suspect]
     Active Substance: OLANZAPINE
     Indication: Antipsychotic therapy
     Dosage: DAILY DOSE: 15 MILLIGRAM
     Dates: start: 2020
  12. PANTOPRAZOLE [Suspect]
     Active Substance: PANTOPRAZOLE
     Indication: Gastrooesophageal reflux disease
     Dosage: DAILY DOSE: 40 MILLIGRAM
     Dates: start: 2009
  13. PREGABALIN [Suspect]
     Active Substance: PREGABALIN
     Indication: Anxiety
     Dosage: DAILY DOSE: 150 MILLIGRAM
  14. PROPRANOLOL [Suspect]
     Active Substance: PROPRANOLOL HYDROCHLORIDE
     Indication: Product used for unknown indication
     Dosage: 3 EVERY 1 DAYS
  15. QUETIAPINE [Suspect]
     Active Substance: QUETIAPINE
     Dosage: DAILY DOSE: 75 MILLIGRAM
     Dates: start: 2020
  16. RISPERIDONE [Suspect]
     Active Substance: RISPERIDONE
     Indication: Antipsychotic therapy
     Dosage: DAILY DOSE: 4 MILLIGRAM
     Dates: start: 2020
  17. ZOPICLONE [Suspect]
     Active Substance: ZOPICLONE
  18. ASPIRIN [Concomitant]
     Active Substance: ASPIRIN
     Indication: Myocardial infarction
     Dosage: DAILY DOSE: 81 MILLIGRAM
     Dates: start: 2010
  19. ATORVASTATIN [Concomitant]
     Active Substance: ATORVASTATIN
     Indication: Myocardial infarction
     Dosage: DAILY DOSE: 80 MILLIGRAM
     Dates: start: 2010
  20. CANAGLIFLOZIN [Concomitant]
     Active Substance: CANAGLIFLOZIN
     Indication: Diabetes mellitus
     Dosage: DAILY DOSE: 100 MILLIGRAM
  21. METFORMIN [Concomitant]
     Active Substance: METFORMIN HYDROCHLORIDE
     Indication: Diabetes mellitus
     Dosage: 2 EVERY 1 DAYS
  22. NITROGLYCERIN [Concomitant]
     Active Substance: NITROGLYCERIN
     Indication: Chest pain
     Dates: start: 2010
  23. RAMIPRIL [Concomitant]
     Active Substance: RAMIPRIL
     Indication: Myocardial infarction
     Dosage: DAILY DOSE: 10 MILLIGRAM
     Dates: start: 2010

REACTIONS (10)
  - Depression [Recovered/Resolved]
  - Anxiety [Recovered/Resolved]
  - Diabetes mellitus [Recovered/Resolved]
  - Suicidal ideation [Recovered/Resolved]
  - Hallucination, auditory [Recovered/Resolved]
  - Hypoglycaemia [Recovered/Resolved]
  - Psychotic disorder [Recovered/Resolved]
  - Product prescribing error [Recovered/Resolved]
  - Sleep disorder [Recovered/Resolved]
  - Insomnia [Recovered/Resolved]
